FAERS Safety Report 6807551-0 (Version None)
Quarter: 2010Q2

REPORT INFORMATION
  Report Type: 
  Country: None (occurrence: None)
  Receive Date: 20100629
  Receipt Date: 20081105
  Transmission Date: 20101027
  Serious: No
  Sender: FDA-Public Use
  Company Number: US-PFIZER INC-2008090006

PATIENT
  Sex: Male

DRUGS (2)
  1. VIAGRA [Suspect]
  2. VICODIN [Suspect]

REACTIONS (6)
  - DIZZINESS [None]
  - DRUG EFFECT DECREASED [None]
  - FLUSHING [None]
  - HEADACHE [None]
  - NASAL CONGESTION [None]
  - VOMITING [None]
